FAERS Safety Report 4984373-7 (Version None)
Quarter: 2006Q2

REPORT INFORMATION
  Report Type: 
  Country: None (occurrence: None)
  Receive Date: 20060427
  Receipt Date: 20051017
  Transmission Date: 20061013
  Serious: No
  Sender: FDA-Public Use
  Company Number: US-BRISTOL-MYERS SQUIBB COMPANY-13147079

PATIENT
  Sex: Female
  Weight: 99 kg

DRUGS (14)
  1. CYTOXAN [Suspect]
     Indication: SYSTEMIC LUPUS ERYTHEMATOSUS
     Route: 048
     Dates: start: 20000101
  2. POTASSIUM [Concomitant]
  3. NEXIUM [Concomitant]
  4. ACCUPRIL [Concomitant]
  5. BUMEX [Concomitant]
  6. CLARINEX [Concomitant]
  7. FOLIC ACID [Concomitant]
  8. TRAZODONE HCL [Concomitant]
  9. XANAX [Concomitant]
  10. WELLBUTRIN SR [Concomitant]
  11. LIPITOR [Concomitant]
  12. ULTRAM [Concomitant]
  13. SOMA [Concomitant]
  14. ASPIRIN + CODEINE [Concomitant]

REACTIONS (1)
  - TOOTH DISCOLOURATION [None]
